FAERS Safety Report 15010265 (Version 1)
Quarter: 2018Q2

REPORT INFORMATION
  Report Type: Spontaneous
  Country: US (occurrence: US)
  Receive Date: 20180528
  Receipt Date: 20180528
  Transmission Date: 20180711
  Serious: Yes (Hospitalization)
  Sender: FDA-Public Use
  Company Number: None

PATIENT
  Age: 43 Year
  Sex: Female
  Weight: 94.05 kg

DRUGS (6)
  1. CYMBALTA [Suspect]
     Active Substance: DULOXETINE HYDROCHLORIDE
     Indication: PAIN
     Dosage: ?          QUANTITY:30 CAPSULES AT BEDTIME ORAL
     Route: 048
     Dates: start: 20180428, end: 20180528
  2. CYMBALTA [Concomitant]
     Active Substance: DULOXETINE HYDROCHLORIDE
  3. INSULIN [Concomitant]
     Active Substance: INSULIN NOS
  4. ALL DAY ALLIGIGIES [Concomitant]
  5. CYMBALTA [Suspect]
     Active Substance: DULOXETINE HYDROCHLORIDE
     Indication: DEPRESSION
     Dosage: ?          QUANTITY:30 CAPSULES AT BEDTIME ORAL
     Route: 048
     Dates: start: 20180428, end: 20180528
  6. NEBULIZER [Concomitant]
     Active Substance: DEVICE

REACTIONS (11)
  - Rash [None]
  - Paranoia [None]
  - Mania [None]
  - Suicidal behaviour [None]
  - Nausea [None]
  - Vomiting [None]
  - Bronchitis [None]
  - Withdrawal syndrome [None]
  - Headache [None]
  - Nightmare [None]
  - Depression [None]

NARRATIVE: CASE EVENT DATE: 20180518
